FAERS Safety Report 7468770-6 (Version None)
Quarter: 2011Q2

REPORT INFORMATION
  Report Type: 
  Country: None (occurrence: None)
  Receive Date: 20110510
  Receipt Date: 20110429
  Transmission Date: 20111010
  Serious: No
  Sender: FDA-Public Use
  Company Number: US-BIOGENIDEC-2011BI016339

PATIENT
  Age: 60 Year
  Sex: Female

DRUGS (1)
  1. TYSABRI [Suspect]
     Indication: MULTIPLE SCLEROSIS
     Route: 042
     Dates: start: 20080617

REACTIONS (4)
  - ONYCHOCLASIS [None]
  - NAIL DISORDER [None]
  - INTERVERTEBRAL DISC DEGENERATION [None]
  - CENTRAL NERVOUS SYSTEM LESION [None]
